FAERS Safety Report 6837109-9 (Version None)
Quarter: 2010Q3

REPORT INFORMATION
  Report Type: 
  Country: None (occurrence: None)
  Receive Date: 20100713
  Receipt Date: 20070502
  Transmission Date: 20110219
  Serious: Yes (Other)
  Sender: FDA-Public Use
  Company Number: US-PFIZER INC-2007037462

PATIENT
  Sex: Female
  Weight: 77.272 kg

DRUGS (4)
  1. CHANTIX [Suspect]
     Indication: SMOKING CESSATION THERAPY
     Dates: start: 20070401, end: 20070401
  2. ULTRAM [Concomitant]
  3. TIAZAC [Concomitant]
  4. TOPROL-XL [Concomitant]

REACTIONS (3)
  - HALLUCINATION [None]
  - NAUSEA [None]
  - VOMITING [None]
